FAERS Safety Report 14498410 (Version 1)
Quarter: 2018Q1

REPORT INFORMATION
  Report Type: Spontaneous
  Country: US (occurrence: US)
  Receive Date: 20180207
  Receipt Date: 20180207
  Transmission Date: 20180509
  Serious: No
  Sender: FDA-Public Use
  Company Number: US-ASTRAZENECA-2018SE11787

PATIENT
  Age: 22359 Day
  Sex: Female
  Weight: 62.6 kg

DRUGS (7)
  1. ARIMIDEX [Suspect]
     Active Substance: ANASTROZOLE
     Indication: BREAST CANCER FEMALE
     Route: 048
     Dates: start: 20180120
  2. VIACTIV CALCIUM PLUS [Concomitant]
     Route: 048
  3. COQ 10 [Concomitant]
     Active Substance: UBIDECARENONE
     Route: 048
  4. FISH OIL [Concomitant]
     Active Substance: FISH OIL
     Route: 048
  5. B12 INJECTION [Concomitant]
  6. LIQUID D3 [Concomitant]
     Route: 048
  7. MULTI VITAMIN [Concomitant]
     Active Substance: VITAMINS
     Route: 048

REACTIONS (1)
  - Hyperchlorhydria [Recovering/Resolving]

NARRATIVE: CASE EVENT DATE: 20180121
